FAERS Safety Report 15950142 (Version 8)
Quarter: 2021Q1

REPORT INFORMATION
  Report Type: Report from Study
  Country: FR (occurrence: FR)
  Receive Date: 20190212
  Receipt Date: 20210310
  Transmission Date: 20210419
  Serious: Yes (Hospitalization, Other)
  Sender: FDA-Public Use
  Company Number: PHHO2019FR001665

PATIENT
  Age: 66 Year
  Sex: Female
  Weight: 72 kg

DRUGS (43)
  1. PRIMPERAN [Concomitant]
     Active Substance: METOCLOPRAMIDE HYDROCHLORIDE
     Indication: NAUSEA
     Dosage: UNK
     Route: 065
     Dates: start: 20181222, end: 20181226
  2. CEFTAZIDIME. [Concomitant]
     Active Substance: CEFTAZIDIME
     Indication: FEBRILE NEUTROPENIA
     Dosage: UNK
     Route: 065
     Dates: start: 20181222, end: 20190104
  3. SODIUM PHOSPHATE MONOBASIC [Concomitant]
     Active Substance: SODIUM PHOSPHATE, MONOBASIC
     Indication: BLOOD PHOSPHORUS DECREASED
     Dosage: UNK
     Route: 065
     Dates: start: 20181224, end: 20181225
  4. METRONIDAZOLE. [Concomitant]
     Active Substance: METRONIDAZOLE
     Indication: INTUSSUSCEPTION
     Dosage: UNK
     Route: 065
     Dates: start: 20181224, end: 20190103
  5. PRIMPERAN [Concomitant]
     Active Substance: METOCLOPRAMIDE HYDROCHLORIDE
     Indication: PROPHYLAXIS
     Dosage: UNK
     Route: 065
     Dates: start: 20190104, end: 20190108
  6. CHLORURE POTASSIUM [Concomitant]
     Indication: HYPOKALAEMIA
     Dosage: UNK
     Route: 065
     Dates: start: 20181226, end: 20190111
  7. LANSOPRAZOLE. [Concomitant]
     Active Substance: LANSOPRAZOLE
     Indication: DUODENITIS
     Dosage: UNK
     Route: 065
     Dates: start: 20181231, end: 20190512
  8. TITANOREINE [Concomitant]
     Active Substance: CARRAGEENAN\TITANIUM\ZINC
     Indication: HAEMORRHOIDS
     Dosage: UNK
     Route: 065
     Dates: start: 20181225, end: 20181229
  9. CERNEVIT [Concomitant]
     Active Substance: VITAMINS
     Indication: DYSPHAGIA
  10. MIDOSTAURIN [Suspect]
     Active Substance: MIDOSTAURIN
     Indication: ACUTE MYELOID LEUKAEMIA
     Dosage: 50 MG, BID
     Route: 048
     Dates: start: 20181219, end: 20190204
  11. IDARUBICIN [Suspect]
     Active Substance: IDARUBICIN
     Indication: ACUTE MYELOID LEUKAEMIA
     Dosage: 12 MG/M2, QD
     Route: 042
     Dates: start: 20181211
  12. AMBISOME [Concomitant]
     Active Substance: AMPHOTERICIN B
     Indication: FEBRILE NEUTROPENIA
     Dosage: UNK
     Route: 065
     Dates: start: 20181225, end: 20181230
  13. LASILIX [Concomitant]
     Active Substance: FUROSEMIDE
     Indication: PROPHYLAXIS
     Dosage: UNK
     Route: 065
     Dates: start: 20190108, end: 20190112
  14. VANCOMYCINE [Concomitant]
     Active Substance: VANCOMYCIN
     Indication: FEBRILE NEUTROPENIA
     Dosage: UNK
     Route: 065
     Dates: start: 20181222, end: 20190102
  15. NOVORAPID [Concomitant]
     Active Substance: INSULIN ASPART
     Indication: DIABETES MELLITUS
     Dosage: UNK
     Route: 065
     Dates: start: 20181227, end: 20181230
  16. NUTRYELT [Concomitant]
     Active Substance: IRON\MINERALS\POTASSIUM IOD\SODIUM FLUORIDE\SODIUM MOLYBDATE\SODIUM SELENITE\ZINC
     Indication: MUCOSAL INFLAMMATION
  17. JANUVIA [Concomitant]
     Active Substance: SITAGLIPTIN PHOSPHATE
     Indication: DIABETES MELLITUS
     Dosage: UNK
     Route: 065
     Dates: start: 20190108, end: 20190110
  18. ZELITREX [Concomitant]
     Active Substance: VALACYCLOVIR HYDROCHLORIDE
     Indication: PROPHYLAXIS
     Dosage: UNK
     Route: 065
     Dates: start: 20190104
  19. ZOPHREN [Concomitant]
     Active Substance: ONDANSETRON
     Indication: NAUSEA
     Dosage: UNK
     Route: 065
     Dates: start: 20181219, end: 20181226
  20. MORPHINE [Concomitant]
     Active Substance: MORPHINE
     Indication: ACUTE PULMONARY OEDEMA
     Dosage: UNK
     Route: 065
     Dates: start: 20181226, end: 20181226
  21. NOVORAPID [Concomitant]
     Active Substance: INSULIN ASPART
     Dosage: UNK
     Route: 065
     Dates: start: 20190107
  22. UMULINE [Concomitant]
     Active Substance: INSULIN HUMAN
     Indication: DIABETES MELLITUS
     Dosage: UNK
     Route: 065
     Dates: start: 20181230, end: 20190107
  23. SODIUM ALGINATE [Concomitant]
     Active Substance: SODIUM ALGINATE
     Indication: DUODENITIS
     Dosage: UNK
     Route: 065
     Dates: start: 20181230, end: 20190131
  24. PHLOROGLUCINOL [Concomitant]
     Active Substance: PHLOROGLUCINOL
     Indication: INTUSSUSCEPTION
     Dosage: UNK
     Route: 065
     Dates: start: 20181223, end: 20190108
  25. ISOSORBIDE DINITRATE. [Concomitant]
     Active Substance: ISOSORBIDE DINITRATE
     Indication: ACUTE PULMONARY OEDEMA
     Dosage: UNK
     Route: 065
     Dates: start: 20181226, end: 20181226
  26. LANTUS [Concomitant]
     Active Substance: INSULIN GLARGINE
     Indication: DIABETES MELLITUS
     Dosage: UNK
     Route: 065
     Dates: start: 20181229, end: 20181229
  27. PARACETAMOL [Concomitant]
     Active Substance: ACETAMINOPHEN
     Indication: HAEMORRHOIDS
     Dosage: UNK
     Route: 065
     Dates: start: 20181227, end: 20181227
  28. ACUPAN [Concomitant]
     Active Substance: NEFOPAM HYDROCHLORIDE
     Indication: HAEMORRHOIDS
     Dosage: UNK
     Route: 065
     Dates: start: 20181223, end: 20181229
  29. LASILIX [Concomitant]
     Active Substance: FUROSEMIDE
     Indication: ACUTE PULMONARY OEDEMA
     Dosage: UNK
     Route: 065
     Dates: start: 20181226, end: 20181227
  30. EXACYL [Concomitant]
     Active Substance: TRANEXAMIC ACID
     Indication: RECTAL HAEMORRHAGE
     Dosage: UNK
     Route: 065
     Dates: start: 20190104, end: 20190108
  31. DESLORATADINE. [Concomitant]
     Active Substance: DESLORATADINE
     Indication: PRURITUS
     Dosage: UNK
     Route: 065
     Dates: start: 20181220, end: 20181222
  32. BETAMETHASONE. [Concomitant]
     Active Substance: BETAMETHASONE
     Indication: PRURITUS
     Dosage: UNK
     Route: 065
     Dates: start: 20181222, end: 20181228
  33. COMPARATOR CYTARABINE [Suspect]
     Active Substance: CYTARABINE
     Indication: ACUTE MYELOID LEUKAEMIA
     Dosage: 200 MG/M2, QD
     Route: 042
     Dates: start: 20181211
  34. ACICLOVIR [Concomitant]
     Active Substance: ACYCLOVIR
     Indication: PROPHYLAXIS
     Dosage: UNK
     Route: 065
     Dates: start: 20181223, end: 20190103
  35. ROCEPHINE [Concomitant]
     Active Substance: CEFTRIAXONE SODIUM
     Indication: FEBRILE NEUTROPENIA
     Dosage: UNK
     Route: 065
     Dates: start: 20181219, end: 20181221
  36. METFORMIN [Concomitant]
     Active Substance: METFORMIN HYDROCHLORIDE
     Indication: DIABETES MELLITUS
     Dosage: UNK
     Route: 065
     Dates: start: 20190107, end: 20190108
  37. VITAMIN K1 [Concomitant]
     Active Substance: PHYTONADIONE
     Indication: HAEMORRHAGE PROPHYLAXIS
     Dosage: UNK
     Route: 065
     Dates: start: 20181223, end: 20190106
  38. CERNEVIT [Concomitant]
     Active Substance: VITAMINS
     Indication: MUCOSAL INFLAMMATION
     Dosage: UNK
     Route: 065
     Dates: start: 20181224, end: 20190106
  39. PARACETAMOL [Concomitant]
     Active Substance: ACETAMINOPHEN
     Indication: FEBRILE NEUTROPENIA
     Dosage: UNK
     Route: 065
     Dates: start: 20181222, end: 20190111
  40. ACUPAN [Concomitant]
     Active Substance: NEFOPAM HYDROCHLORIDE
     Indication: INTUSSUSCEPTION
     Dosage: UNK
     Route: 065
     Dates: start: 20190101, end: 20190111
  41. AMIKLIN [Concomitant]
     Active Substance: AMIKACIN SULFATE
     Indication: FEBRILE NEUTROPENIA
     Dosage: UNK
     Route: 065
     Dates: start: 20181219, end: 20181221
  42. PHLOROGLUCINOL [Concomitant]
     Active Substance: PHLOROGLUCINOL
     Indication: DUODENITIS
  43. NUTRYELT [Concomitant]
     Active Substance: IRON\MINERALS\POTASSIUM IOD\SODIUM FLUORIDE\SODIUM MOLYBDATE\SODIUM SELENITE\ZINC
     Indication: DYSPHAGIA
     Dosage: UNK
     Route: 065
     Dates: start: 20181224, end: 20181230

REACTIONS (1)
  - Hepatosplenic candidiasis [Not Recovered/Not Resolved]

NARRATIVE: CASE EVENT DATE: 20190109
